FAERS Safety Report 4521090-1 (Version None)
Quarter: 2004Q4

REPORT INFORMATION
  Report Type: 
  Country: None (occurrence: None)
  Receive Date: 20041203
  Receipt Date: 20041129
  Transmission Date: 20050328
  Serious: Yes (Other)
  Sender: FDA-Public Use
  Company Number: 200410626BYL

PATIENT
  Age: 54 Year
  Sex: Male

DRUGS (3)
  1. ASPIRIN [Suspect]
     Dosage: ORAL
     Route: 048
     Dates: start: 20021201, end: 20030101
  2. TICLOPIDINE HCL [Suspect]
     Dosage: ORAL
     Route: 048
  3. PRAVASTATIN [Suspect]
     Dosage: ORAL
     Route: 048

REACTIONS (1)
  - LIVER DISORDER [None]
